FAERS Safety Report 6746236-6 (Version None)
Quarter: 2010Q2

REPORT INFORMATION
  Report Type: 
  Country: None (occurrence: None)
  Receive Date: 20100528
  Receipt Date: 20100114
  Transmission Date: 20101027
  Serious: No
  Sender: FDA-Public Use
  Company Number: US-ASTRAZENECA-2010SE02969

PATIENT
  Age: 67 Year
  Sex: Female

DRUGS (6)
  1. PRILOSEC [Suspect]
     Indication: PROPHYLAXIS
     Route: 048
     Dates: start: 20050101
  2. PLAVIX [Interacting]
     Indication: BLOOD CHOLESTEROL INCREASED
     Route: 048
  3. PLAVIX [Interacting]
     Indication: CARDIOVASCULAR EVENT PROPHYLAXIS
     Route: 048
  4. FLEXERIL [Concomitant]
  5. AMLODIPINE [Concomitant]
  6. HYDROCHLOROTHIAZIDE [Concomitant]

REACTIONS (5)
  - ABDOMINAL DISCOMFORT [None]
  - CHEST PAIN [None]
  - DRUG INTERACTION [None]
  - HYPOAESTHESIA [None]
  - HYPOAESTHESIA FACIAL [None]
